FAERS Safety Report 14102908 (Version 2)
Quarter: 2018Q2

REPORT INFORMATION
  Report Type: Spontaneous
  Country: US (occurrence: US)
  Receive Date: 20171018
  Receipt Date: 20180522
  Transmission Date: 20180711
  Serious: No
  Sender: FDA-Public Use
  Company Number: US-MYLANLABS-2017M1065515

PATIENT
  Sex: Female

DRUGS (1)
  1. INDOMETHACIN CAPSULES, USP [Suspect]
     Active Substance: INDOMETHACIN
     Indication: GOUT
     Dosage: UNK

REACTIONS (2)
  - Abdominal pain upper [Unknown]
  - Malaise [Unknown]
